FAERS Safety Report 19660258 (Version 1)
Quarter: 2021Q3

REPORT INFORMATION
  Report Type: Spontaneous
  Country: FR (occurrence: FR)
  Receive Date: 20210805
  Receipt Date: 20210805
  Transmission Date: 20211014
  Serious: Yes (Other)
  Sender: FDA-Public Use
  Company Number: FR-GLAXOSMITHKLINE-FR2021166599

PATIENT
  Age: 71 Year
  Sex: Female
  Weight: 62.2 kg

DRUGS (3)
  1. LAMICTAL [Suspect]
     Active Substance: LAMOTRIGINE
     Indication: MIXED ANXIETY AND DEPRESSIVE DISORDER
     Dosage: 25 MG, QD, (25 MG/DAY)
     Route: 048
     Dates: start: 20210415
  2. RISPERDAL [Suspect]
     Active Substance: RISPERIDONE
     Indication: MIXED ANXIETY AND DEPRESSIVE DISORDER
     Dosage: 1 DF, QD, (1CP IN THE EVENING)
     Route: 048
     Dates: start: 20210415
  3. EFFEXOR [Suspect]
     Active Substance: VENLAFAXINE HYDROCHLORIDE
     Indication: MIXED ANXIETY AND DEPRESSIVE DISORDER
     Dosage: 6 MG, QD, (6 MGDAY)
     Route: 048
     Dates: start: 20210415

REACTIONS (2)
  - Cholestasis [Unknown]
  - Hepatic cytolysis [Not Recovered/Not Resolved]

NARRATIVE: CASE EVENT DATE: 20210520
